FAERS Safety Report 26189741 (Version 1)
Quarter: 2025Q4

REPORT INFORMATION
  Report Type: Spontaneous
  Country: BR (occurrence: BR)
  Receive Date: 20251223
  Receipt Date: 20251223
  Transmission Date: 20260118
  Serious: Yes (Other)
  Sender: GE HEALTHCARE
  Company Number: BR-GE HEALTHCARE-2025CSU018343

PATIENT
  Age: 50 Year
  Sex: Male
  Weight: 88 kg

DRUGS (1)
  1. OMNISCAN [Suspect]
     Active Substance: GADODIAMIDE
     Indication: Magnetic resonance imaging
     Dosage: 20 ML, TOTAL
     Route: 042
     Dates: start: 20251205

REACTIONS (1)
  - Periorbital oedema [Recovered/Resolved]

NARRATIVE: CASE EVENT DATE: 20251205
